FAERS Safety Report 5895050-2 (Version None)
Quarter: 2008Q3

REPORT INFORMATION
  Report Type: 
  Country: None (occurrence: None)
  Receive Date: 20080924
  Receipt Date: 20080918
  Transmission Date: 20090109
  Serious: Yes (Other)
  Sender: FDA-Public Use
  Company Number: US-PFIZER INC-2008079212

PATIENT
  Sex: Male

DRUGS (2)
  1. LIPITOR [Suspect]
     Indication: BLOOD CHOLESTEROL INCREASED
  2. VITAMIN TAB [Concomitant]

REACTIONS (4)
  - DRY MOUTH [None]
  - INCREASED APPETITE [None]
  - NEPHROLITHIASIS [None]
  - WEIGHT INCREASED [None]
